FAERS Safety Report 23809391 (Version 1)
Quarter: 2024Q2

REPORT INFORMATION
  Report Type: Spontaneous
  Country: US (occurrence: None)
  Receive Date: 20240501
  Receipt Date: 20240501
  Transmission Date: 20240716
  Serious: Yes (Other)
  Sender: FDA-Public Use
  Company Number: None

PATIENT
  Age: 42 Year
  Sex: Female
  Weight: 58 kg

DRUGS (1)
  1. INFLECTRA [Suspect]
     Active Substance: INFLIXIMAB-DYYB
     Indication: Colitis ulcerative
     Dosage: OTHER FREQUENCY : EVERY 8 WEEKS;?
     Route: 041
     Dates: start: 20240327, end: 20240408

REACTIONS (13)
  - Pain in extremity [None]
  - Pain in extremity [None]
  - Neck pain [None]
  - Myalgia [None]
  - Movement disorder [None]
  - Arthropathy [None]
  - Fatigue [None]
  - Arthralgia [None]
  - Musculoskeletal stiffness [None]
  - Drug specific antibody [None]
  - Autoimmune disorder [None]
  - Paradoxical drug reaction [None]
  - Hypersensitivity [None]

NARRATIVE: CASE EVENT DATE: 20240408
